FAERS Safety Report 23100829 (Version 2)
Quarter: 2023Q4

REPORT INFORMATION
  Report Type: Report from Study
  Country: ES (occurrence: ES)
  Receive Date: 20231024
  Receipt Date: 20231222
  Transmission Date: 20240109
  Serious: No
  Sender: FDA-Public Use
  Company Number: ES-ROCHE-3184929

PATIENT
  Age: 76 Year
  Sex: Male
  Weight: 73.1 kg

DRUGS (16)
  1. BEVACIZUMAB [Suspect]
     Active Substance: BEVACIZUMAB
     Indication: Non-small cell lung cancer metastatic
     Dosage: 525 MILLIGRAM
     Route: 065
     Dates: start: 20211026
  2. PACLITAXEL [Suspect]
     Active Substance: PACLITAXEL
     Indication: Non-small cell lung cancer metastatic
     Dosage: 253 MILLIGRAM
     Route: 065
     Dates: start: 20211026
  3. CARBOPLATIN [Suspect]
     Active Substance: CARBOPLATIN
     Indication: Non-small cell lung cancer metastatic
     Dosage: 350 MILLIGRAM
     Route: 065
     Dates: start: 20211026
  4. ATEZOLIZUMAB [Suspect]
     Active Substance: ATEZOLIZUMAB
     Indication: Non-small cell lung cancer metastatic
     Dosage: 1200 MILLIGRAM
     Route: 042
     Dates: start: 20211026
  5. VALACYCLOVIR HYDROCHLORIDE [Concomitant]
     Active Substance: VALACYCLOVIR HYDROCHLORIDE
     Dosage: UNK
     Dates: start: 20211115
  6. TRAMADOL [Concomitant]
     Active Substance: TRAMADOL\TRAMADOL HYDROCHLORIDE
     Dosage: UNK, BID
     Dates: start: 20210611
  7. BROMAZEPAM [Concomitant]
     Active Substance: BROMAZEPAM
     Dosage: UNK, QD
     Dates: start: 20201023
  8. SINTROM [Concomitant]
     Active Substance: ACENOCOUMAROL
     Dosage: UNK, BID
     Dates: start: 20201201
  9. FENTANYL [Concomitant]
     Active Substance: FENTANYL\FENTANYL CITRATE
     Dosage: UNK UNK, TID
     Dates: start: 20211201
  10. FUROSEMIDE [Concomitant]
     Active Substance: FUROSEMIDE
     Dosage: UNK, TID
  11. CONDROSAN [Concomitant]
     Dosage: UNK, BID
     Dates: start: 20200505
  12. BISOPROLOL [Concomitant]
     Active Substance: BISOPROLOL\BISOPROLOL FUMARATE
     Dosage: UNK, QD
     Dates: start: 20201023
  13. IBANDRONIC ACID [Concomitant]
     Active Substance: IBANDRONIC ACID
     Dosage: UNK, QMO
     Dates: start: 20211212
  14. DUTASTERIDE\TAMSULOSIN [Concomitant]
     Active Substance: DUTASTERIDE\TAMSULOSIN
     Dosage: UNK, QD
     Dates: start: 20201023
  15. FOSTER [Concomitant]
     Active Substance: BECLOMETHASONE\FORMOTEROL
     Indication: Prophylaxis
     Dosage: UNK
     Dates: start: 20201023
  16. ACETAMINOPHEN [Concomitant]
     Active Substance: ACETAMINOPHEN
     Dosage: UNK
     Dates: start: 20210814

REACTIONS (2)
  - Rash [Not Recovered/Not Resolved]
  - Joint swelling [Not Recovered/Not Resolved]

NARRATIVE: CASE EVENT DATE: 20220824
